FAERS Safety Report 4636052-3 (Version None)
Quarter: 2005Q2

REPORT INFORMATION
  Report Type: 
  Country: None (occurrence: None)
  Receive Date: 20050331
  Receipt Date: 20040513
  Transmission Date: 20051028
  Serious: Yes (Other)
  Sender: FDA-Public Use
  Company Number: 200412413BCC

PATIENT
  Age: 65 Year
  Sex: Female
  Weight: 77.1115 kg

DRUGS (5)
  1. ALEVE (CAPLET) [Suspect]
     Indication: ARTHRITIS
     Dosage: 220 MG, QD, ORAL
     Route: 048
     Dates: start: 20040511, end: 20040512
  2. IBUPROFEN [Concomitant]
  3. PRONEB ULTRA [Concomitant]
  4. ALBUTEROL [Concomitant]
  5. IPRATROPIUM BROMIDE [Concomitant]

REACTIONS (5)
  - BURNING SENSATION [None]
  - DYSPNOEA [None]
  - HYPERSENSITIVITY [None]
  - RASH [None]
  - RASH GENERALISED [None]
